APPROVED DRUG PRODUCT: DOXYCYCLINE
Active Ingredient: DOXYCYCLINE
Strength: EQ 75MG BASE
Dosage Form/Route: TABLET;ORAL
Application: A065356 | Product #002 | TE Code: AB
Applicant: SUN PHARMACEUTICAL INDUSTRIES LTD
Approved: May 31, 2006 | RLD: No | RS: No | Type: RX